FAERS Safety Report 20844948 (Version 1)
Quarter: 2022Q2

REPORT INFORMATION
  Report Type: Spontaneous
  Country: US (occurrence: None)
  Receive Date: 20220517
  Receipt Date: 20220517
  Transmission Date: 20220721
  Serious: No
  Sender: FDA-Public Use
  Company Number: None

PATIENT
  Age: 68 Year
  Sex: Female

DRUGS (12)
  1. AMBRISENTAN [Suspect]
     Active Substance: AMBRISENTAN
     Indication: Pulmonary arterial hypertension
     Route: 048
  2. ATORVASTATIN CALCIUM [Concomitant]
     Active Substance: ATORVASTATIN CALCIUM
  3. SULFASALAZINE [Concomitant]
     Active Substance: SULFASALAZINE
  4. LETAIRIS [Concomitant]
     Active Substance: AMBRISENTAN
  5. TORSEMIDE [Concomitant]
     Active Substance: TORSEMIDE
  6. ATENOLOL [Concomitant]
     Active Substance: ATENOLOL
  7. VITAMIN D2 [Concomitant]
     Active Substance: ERGOCALCIFEROL
  8. FOLIC ACID [Concomitant]
     Active Substance: FOLIC ACID
  9. LETAIRIS [Concomitant]
     Active Substance: AMBRISENTAN
  10. HERBALS\TURMERIC [Concomitant]
     Active Substance: HERBALS\TURMERIC
  11. FERROUS SULFATE IRON [Concomitant]
  12. ASPIRIN [Concomitant]
     Active Substance: ASPIRIN

REACTIONS (3)
  - Product substitution issue [None]
  - Drug intolerance [None]
  - Illness [None]

NARRATIVE: CASE EVENT DATE: 20220517
